FAERS Safety Report 4896000-8 (Version None)
Quarter: 2006Q1

REPORT INFORMATION
  Report Type: 
  Country: None (occurrence: None)
  Receive Date: 20060126
  Receipt Date: 20060119
  Transmission Date: 20060701
  Serious: Yes (Death)
  Sender: FDA-Public Use
  Company Number: 200610386BWH

PATIENT
  Age: 54 Year
  Sex: Male
  Weight: 118.8424 kg

DRUGS (8)
  1. SORAFENIB [Suspect]
     Indication: METASTATIC RENAL CELL CARCINOMA
     Dosage: 800 MG, TOTAL DAILY, ORAL
     Route: 048
     Dates: start: 20050915, end: 20060117
  2. VERAPAMIL [Concomitant]
  3. LISINOPRIL [Concomitant]
  4. HYDROCHLOROTHIAZIDE [Concomitant]
  5. LOVASTATIN [Concomitant]
  6. HYDROCORTISONE [Concomitant]
  7. HYDROCODONE BITARTRATE [Concomitant]
  8. IMODIUM [Concomitant]

REACTIONS (2)
  - LOSS OF CONSCIOUSNESS [None]
  - MYOCARDIAL INFARCTION [None]
